FAERS Safety Report 7149972-5 (Version None)
Quarter: 2010Q4

REPORT INFORMATION
  Report Type: 
  Country: None (occurrence: None)
  Receive Date: 20101210
  Receipt Date: 20101201
  Transmission Date: 20110411
  Serious: Yes (Other)
  Sender: FDA-Public Use
  Company Number: US-RB-016351-10

PATIENT
  Age: 32 Year
  Sex: Female

DRUGS (1)
  1. MUCINEX DM [Suspect]
     Dosage: 2 TABLETS EVERY 12 HOURS FOR 1 DAY, THEN ONE TABLET EVERY 12 HOURS FOR 2 DAYS
     Route: 048

REACTIONS (1)
  - EPISTAXIS [None]
